FAERS Safety Report 9907416 (Version 1)
Quarter: 2014Q1

REPORT INFORMATION
  Report Type: Spontaneous
  Country: US (occurrence: US)
  Receive Date: 20140218
  Receipt Date: 20140218
  Transmission Date: 20141002
  Serious: No
  Sender: FDA-Public Use
  Company Number: US-009507513-1402USA004684

PATIENT
  Age: 92 Year
  Sex: Female

DRUGS (2)
  1. ZETIA [Suspect]
     Dosage: 10MG TAKEN ONCE DAILY
     Route: 048
  2. CRESTOR [Concomitant]
     Dosage: UNK

REACTIONS (1)
  - Adverse event [Unknown]
